FAERS Safety Report 8394801-5 (Version None)
Quarter: 2012Q2

REPORT INFORMATION
  Report Type: 
  Country: None (occurrence: None)
  Receive Date: 20120530
  Receipt Date: 20110817
  Transmission Date: 20120825
  Serious: Yes (Death)
  Sender: FDA-Public Use
  Company Number: US-ASTELLAS-2012US000594

PATIENT
  Sex: Female
  Weight: 37 kg

DRUGS (8)
  1. LORTAB [Concomitant]
     Indication: PAIN
     Dosage: UNK
     Route: 048
     Dates: start: 20110616
  2. PHENERGAN [Concomitant]
     Indication: VOMITING
  3. ZOFRAN [Concomitant]
     Indication: NAUSEA
     Dosage: 8 MG, Q8 HOURS
     Route: 048
     Dates: start: 20110615
  4. ZOFRAN [Concomitant]
     Indication: VOMITING
  5. PHENERGAN [Concomitant]
     Indication: NAUSEA
     Dosage: 8 MG, Q6 HOURS
     Route: 048
  6. TARCEVA [Suspect]
     Indication: PANCREATIC CARCINOMA
     Dosage: 100 MG, UID/QD
     Route: 048
     Dates: start: 20110622, end: 20110720
  7. MORPHINE [Concomitant]
     Indication: PAIN
     Dosage: UNK
     Route: 048
     Dates: start: 20110615
  8. PREDNISONE TAB [Concomitant]
     Indication: PRODUCT USED FOR UNKNOWN INDICATION
     Dosage: 10 MG, UID/QD
     Route: 048

REACTIONS (7)
  - DRUG INEFFECTIVE [None]
  - METASTASES TO LIVER [None]
  - HYPOKALAEMIA [None]
  - CACHEXIA [None]
  - PANCREATIC CARCINOMA [None]
  - HYPERCALCAEMIA [None]
  - HYPOMAGNESAEMIA [None]
